FAERS Safety Report 7776549-0 (Version None)
Quarter: 2011Q3

REPORT INFORMATION
  Report Type: 
  Country: None (occurrence: None)
  Receive Date: 20110926
  Receipt Date: 20110915
  Transmission Date: 20111222
  Serious: Yes (Hospitalization, Disabling)
  Sender: FDA-Public Use
  Company Number: PL-JNJFOC-20110907943

PATIENT
  Sex: Male
  Weight: 80 kg

DRUGS (5)
  1. RISPERIDONE [Suspect]
     Route: 030
     Dates: start: 20110601
  2. RISPERIDONE [Suspect]
     Route: 030
  3. ZOLAFREN [Concomitant]
     Indication: SCHIZOPHRENIA
     Route: 065
  4. RISPERIDONE [Suspect]
     Indication: SCHIZOPHRENIA
     Route: 030
  5. ABILIFY [Concomitant]
     Indication: SCHIZOPHRENIA
     Route: 065

REACTIONS (2)
  - MICTURITION DISORDER [None]
  - MICTURITION URGENCY [None]
